FAERS Safety Report 4737963-0 (Version None)
Quarter: 2005Q3

REPORT INFORMATION
  Report Type: 
  Country: None (occurrence: None)
  Receive Date: 20050805
  Receipt Date: 20050725
  Transmission Date: 20060218
  Serious: Yes (Hospitalization, Other)
  Sender: FDA-Public Use
  Company Number: 04-06-0922

PATIENT
  Age: 43 Day
  Sex: Male
  Weight: 5.3 kg

DRUGS (2)
  1. PROGLYCEM [Suspect]
     Indication: HYPERINSULINISM
     Dosage: 17MG.KG-1QD ORAL
     Route: 048
  2. OCTREOTIDE [Concomitant]

REACTIONS (16)
  - CARDIAC FAILURE CONGESTIVE [None]
  - CARDIOMEGALY [None]
  - DIABETES MELLITUS INADEQUATE CONTROL [None]
  - DILATATION VENTRICULAR [None]
  - DRUG TOXICITY [None]
  - FLUID RETENTION [None]
  - GENERALISED OEDEMA [None]
  - HEPATOMEGALY [None]
  - MITRAL VALVE INCOMPETENCE [None]
  - OLIGURIA [None]
  - PULMONARY HYPERTENSION [None]
  - RENAL FAILURE ACUTE [None]
  - RESPIRATORY FAILURE [None]
  - TACHYCARDIA [None]
  - TRICUSPID VALVE INCOMPETENCE [None]
  - WEIGHT DECREASED [None]
